FAERS Safety Report 6556749-8 (Version None)
Quarter: 2010Q1

REPORT INFORMATION
  Report Type: 
  Country: None (occurrence: None)
  Receive Date: 20100128
  Receipt Date: 20100127
  Transmission Date: 20100710
  Serious: Yes (Other)
  Sender: FDA-Public Use
  Company Number: DE-SANOFI-AVENTIS-2010SA004859

PATIENT
  Age: 49 Year
  Sex: Male
  Weight: 189 kg

DRUGS (3)
  1. MULTAQ [Suspect]
     Route: 048
     Dates: start: 20100101
  2. FLECAINIDE [Concomitant]
     Route: 048
     Dates: end: 20100101
  3. BISOPROLOL FUMARATE [Concomitant]
     Indication: HEART RATE INCREASED
     Route: 048
     Dates: start: 20100101

REACTIONS (2)
  - ATRIAL FIBRILLATION [None]
  - NO THERAPEUTIC RESPONSE [None]
